FAERS Safety Report 23530432 (Version 1)
Quarter: 2024Q1

REPORT INFORMATION
  Report Type: Spontaneous
  Country: ZA (occurrence: ZA)
  Receive Date: 20240216
  Receipt Date: 20240216
  Transmission Date: 20240410
  Serious: Yes (Hospitalization)
  Sender: FDA-Public Use
  Company Number: ZA-LUPIN PHARMACEUTICALS INC.-2024-01018

PATIENT

DRUGS (8)
  1. DESVENLAFAXINE BENZOATE [Suspect]
     Active Substance: DESVENLAFAXINE BENZOATE
     Indication: Depression
     Dosage: 100 MILLIGRAM, QD (TAKE ONE TABLET DAILY)
     Route: 048
  2. DESVENLAFAXINE SUCCINATE [Suspect]
     Active Substance: DESVENLAFAXINE SUCCINATE
     Indication: Depression
     Dosage: 50 MILLIGRAM, QD (TAKE ONE TABLET DAILY)
     Route: 048
  3. VALPROATE SODIUM [Suspect]
     Active Substance: VALPROATE SODIUM
     Indication: Depression
     Dosage: 500 MILLIGRAM (TAKE ONE TABLET AT NIGHT)
     Route: 048
  4. BISOPROLOL FUMARATE [Suspect]
     Active Substance: BISOPROLOL FUMARATE
     Indication: Hypertension
     Dosage: 5 MILLIGRAM, QD (TAKE ONE TABLET DAILY)
     Route: 048
  5. ECOTRIN [Suspect]
     Active Substance: ASPIRIN
     Indication: Hypertension
     Dosage: 81 MILLIGRAM, QD (TAKE ONE TABLET DAILY)
     Route: 048
  6. ROSUVASTATIN CALCIUM [Suspect]
     Active Substance: ROSUVASTATIN CALCIUM
     Indication: Blood cholesterol abnormal
     Dosage: 40 MILLIGRAM (TAKE ONE TABLET AT NIGHT)
     Route: 048
  7. TOUJEO [Suspect]
     Active Substance: INSULIN GLARGINE
     Indication: Diabetes mellitus
     Dosage: 300 INTERNATIONAL UNIT (36 UNITS AT NIGHT)
     Route: 058
  8. NOVORAPID [Suspect]
     Active Substance: INSULIN ASPART
     Indication: Diabetes mellitus
     Dosage: 100 INTERNATIONAL UNIT (10 UNITS WITH MEALS)
     Route: 058

REACTIONS (1)
  - Cardiac disorder [Unknown]
